APPROVED DRUG PRODUCT: URSODIOL
Active Ingredient: URSODIOL
Strength: 300MG
Dosage Form/Route: CAPSULE;ORAL
Application: A213200 | Product #001 | TE Code: AB
Applicant: RISING PHARMACEUTICALS
Approved: Feb 12, 2020 | RLD: No | RS: No | Type: RX